FAERS Safety Report 8217324 (Version 3)
Quarter: 2013Q2

REPORT INFORMATION
  Report Type: Spontaneous
  Country: US (occurrence: US)
  Receive Date: 20111101
  Receipt Date: 20130403
  Transmission Date: 20140414
  Serious: Yes (Hospitalization)
  Sender: FDA-Public Use
  Company Number: US-BAYER-2011-102998

PATIENT
  Age: 24 Year
  Sex: Female
  Weight: 77.1 kg

DRUGS (10)
  1. OCELLA [Suspect]
     Indication: CONTRACEPTION
     Dosage: UNK
     Dates: start: 200802, end: 200910
  2. OCELLA [Suspect]
     Indication: ABDOMINAL PAIN
  3. OCELLA [Suspect]
     Indication: ACNE
  4. IBUPROFEN [Concomitant]
     Indication: PAIN
     Dosage: UNK UNK, PRN
     Route: 048
  5. TYLENOL WITH CODEIN #3 [Concomitant]
     Indication: PAIN
     Dosage: UNK UNK, PRN
     Route: 048
  6. PREDNISONE [Concomitant]
  7. APAP W/CODEINE [Concomitant]
     Dosage: 300-30 MG TABLETS; TOTAL 12 DISPENSED
  8. LEVAQUIN [Concomitant]
     Dosage: 500 MG, UNK 5 DISPENSED
  9. METOCLOPRAMIDE [Concomitant]
     Dosage: 10 MG, UNK 10 DISPENSED
  10. METRONIDAZOLE [Concomitant]
     Dosage: 500 MG, UNK 5 DISPENSED

REACTIONS (9)
  - Pulmonary embolism [None]
  - Pulmonary infarction [None]
  - Thrombosis [None]
  - Injury [None]
  - Pain [None]
  - General physical health deterioration [None]
  - Anxiety [None]
  - Anhedonia [None]
  - Emotional distress [None]
